FAERS Safety Report 8017297-1 (Version None)
Quarter: 2012Q1

REPORT INFORMATION
  Report Type: 
  Country: None (occurrence: None)
  Receive Date: 20120102
  Receipt Date: 20111222
  Transmission Date: 20120608
  Serious: Yes (Other)
  Sender: FDA-Public Use
  Company Number: PHFR2011GB06301

PATIENT
  Sex: Male

DRUGS (2)
  1. CLOZARIL [Suspect]
     Indication: SCHIZOPHRENIA
     Dosage: 100 MG AT AM AND 275 MG AT PM
     Route: 048
     Dates: start: 20110922
  2. CLOZARIL [Suspect]
     Dosage: 350 MG, UNK
     Route: 048

REACTIONS (3)
  - WHITE BLOOD CELL COUNT INCREASED [None]
  - TACHYCARDIA [None]
  - C-REACTIVE PROTEIN INCREASED [None]
